FAERS Safety Report 11196287 (Version 2)
Quarter: 2015Q3

REPORT INFORMATION
  Report Type: Spontaneous
  Country: BR (occurrence: BR)
  Receive Date: 20150617
  Receipt Date: 20150819
  Transmission Date: 20151125
  Serious: Yes (Hospitalization, Other)
  Sender: FDA-Public Use
  Company Number: BR-PFIZER INC-2015196582

PATIENT
  Age: 74 Year
  Sex: Female
  Weight: 57 kg

DRUGS (6)
  1. LIPITOR [Suspect]
     Active Substance: ATORVASTATIN CALCIUM
     Indication: BLOOD CHOLESTEROL ABNORMAL
     Dosage: 1/2 TABLET OF 80MG AT NIGHT EVERY DAY
     Route: 048
     Dates: start: 20080610
  2. LIPITOR [Suspect]
     Active Substance: ATORVASTATIN CALCIUM
     Indication: BLOOD TRIGLYCERIDES ABNORMAL
  3. MONOCORDIL [Suspect]
     Active Substance: ISOSORBIDE MONONITRATE
     Indication: INFARCTION
     Dosage: UNK
  4. AAS INFANTIL [Suspect]
     Active Substance: ASPIRIN
     Indication: INFARCTION
     Dosage: 20 MG, UNK
  5. BRILINTA [Suspect]
     Active Substance: TICAGRELOR
     Indication: INFARCTION
     Dosage: 90 MG, UNK
  6. LANZOPRAZOL [Concomitant]
     Active Substance: LANSOPRAZOLE
     Dosage: 1 TABLET, DAILY
     Dates: start: 2011

REACTIONS (2)
  - Infarction [Recovered/Resolved]
  - Coronary artery occlusion [Recovered/Resolved]

NARRATIVE: CASE EVENT DATE: 20150428
